FAERS Safety Report 20800741 (Version 4)
Quarter: 2022Q2

REPORT INFORMATION
  Report Type: Report from Study
  Country: JP (occurrence: JP)
  Receive Date: 20220509
  Receipt Date: 20220629
  Transmission Date: 20220720
  Serious: Yes (Hospitalization, Disabling, Other)
  Sender: FDA-Public Use
  Company Number: JP-INSMED, INC.-2022-01173-JP

PATIENT
  Age: 68 Year
  Sex: Female
  Weight: 44.4 kg

DRUGS (7)
  1. ARIKAYCE [Suspect]
     Active Substance: AMIKACIN
     Indication: Mycobacterium avium complex infection
     Dosage: 590 MILLIGRAM, QD
     Route: 055
     Dates: start: 20211005, end: 20220524
  2. SITAFLOXACIN [Concomitant]
     Active Substance: SITAFLOXACIN
     Indication: Mycobacterium avium complex infection
     Dosage: 100 MILLIGRAM, QD
     Route: 048
     Dates: start: 20210212
  3. RIFAMPIN [Concomitant]
     Active Substance: RIFAMPIN
     Indication: Mycobacterium avium complex infection
     Dosage: 450 MILLIGRAM, QD
     Route: 048
     Dates: start: 201702
  4. CLARITHROMYCIN [Concomitant]
     Active Substance: CLARITHROMYCIN
     Indication: Mycobacterium avium complex infection
     Dosage: 400 MILLIGRAM, BID
     Route: 048
     Dates: start: 201702
  5. LEVOCETIRIZINE HYDROCHLORIDE [Concomitant]
     Active Substance: LEVOCETIRIZINE HYDROCHLORIDE
     Indication: Mycobacterium avium complex infection
     Dosage: 5 MILLIGRAM, QD
     Route: 048
     Dates: start: 20211015, end: 20220524
  6. CODEINE PHOSPHATE [Concomitant]
     Active Substance: CODEINE PHOSPHATE
     Indication: Mycobacterium avium complex infection
     Dosage: 20 MILLIGRAM, QD
     Route: 048
     Dates: start: 20210507, end: 20220524
  7. NEXIUM [Concomitant]
     Active Substance: ESOMEPRAZOLE MAGNESIUM
     Indication: Gastritis
     Dosage: 20 MILLIGRAM, QD
     Route: 048
     Dates: start: 20220318

REACTIONS (3)
  - Hypercapnia [Not Recovered/Not Resolved]
  - Mycobacterium avium complex infection [Unknown]
  - Oedema peripheral [Not Recovered/Not Resolved]

NARRATIVE: CASE EVENT DATE: 20220525
